FAERS Safety Report 6332329-4 (Version None)
Quarter: 2009Q3

REPORT INFORMATION
  Report Type: 
  Country: None (occurrence: None)
  Receive Date: 20090828
  Receipt Date: 20090824
  Transmission Date: 20100115
  Serious: Yes (Hospitalization)
  Sender: FDA-Public Use
  Company Number: JP-BRISTOL-MYERS SQUIBB COMPANY-14699565

PATIENT
  Age: 63 Year
  Sex: Female
  Weight: 54 kg

DRUGS (3)
  1. ERBITUX [Suspect]
     Indication: RECTAL CANCER
     Dosage: 22-MAY09(400MG/M2);29MAY09-26JUN09: 250MG/M2,1/1WK
     Route: 042
     Dates: start: 20090522, end: 20090626
  2. POLARAMINE [Concomitant]
     Indication: PREMEDICATION
     Route: 042
     Dates: start: 20090522, end: 20090626
  3. DECADRON [Concomitant]
     Indication: PREMEDICATION
     Route: 042
     Dates: start: 20090522, end: 20090626

REACTIONS (2)
  - ANAL HAEMORRHAGE [None]
  - VAGINAL HAEMORRHAGE [None]
